FAERS Safety Report 10250784 (Version 3)
Quarter: 2014Q3

REPORT INFORMATION
  Report Type: Spontaneous
  Country: JP (occurrence: JP)
  Receive Date: 20140620
  Receipt Date: 20140722
  Transmission Date: 20150326
  Serious: No
  Sender: FDA-Public Use
  Company Number: JP-EISAI INC-E7389-05113-SPO-JP

PATIENT
  Age: 68 Year
  Sex: Female
  Weight: 74 kg

DRUGS (4)
  1. HALAVEN [Suspect]
     Active Substance: ERIBULIN MESYLATE
     Indication: BREAST CANCER RECURRENT
     Dosage: 2.3 MG
     Route: 041
     Dates: start: 20140307
  2. HALAVEN [Suspect]
     Active Substance: ERIBULIN MESYLATE
     Indication: METASTASES TO LIVER
  3. HALAVEN [Suspect]
     Active Substance: ERIBULIN MESYLATE
     Indication: METASTASES TO LYMPH NODES
  4. DECADRON [Concomitant]
     Active Substance: DEXAMETHASONE
     Indication: PRODUCT USED FOR UNKNOWN INDICATION
     Dosage: 6.6 MG
     Route: 042
     Dates: start: 20140307

REACTIONS (1)
  - Hepatic steatosis [Not Recovered/Not Resolved]

NARRATIVE: CASE EVENT DATE: 20140508
